FAERS Safety Report 25646780 (Version 1)
Quarter: 2025Q3

REPORT INFORMATION
  Report Type: Report from Study
  Country: CA (occurrence: CA)
  Receive Date: 20250805
  Receipt Date: 20250805
  Transmission Date: 20251021
  Serious: Yes (Other)
  Sender: HLS THERAPEUTICS
  Company Number: CA-HLS-202501928

PATIENT
  Age: 26 Year
  Sex: Male

DRUGS (3)
  1. CLOZARIL [Suspect]
     Active Substance: CLOZAPINE
     Indication: Product used for unknown indication
     Route: 048
     Dates: start: 20250501
  2. HALOPERIDOL [Concomitant]
     Active Substance: HALOPERIDOL
     Route: 065
  3. gravocol [Concomitant]
     Route: 065

REACTIONS (5)
  - Electrocardiogram P wave abnormal [Unknown]
  - QRS axis abnormal [Unknown]
  - Electrocardiogram QRS complex prolonged [Unknown]
  - Electrocardiogram QT prolonged [Unknown]
  - Electrocardiogram T wave abnormal [Unknown]

NARRATIVE: CASE EVENT DATE: 20250703
